FAERS Safety Report 13931538 (Version 4)
Quarter: 2017Q4

REPORT INFORMATION
  Report Type: Report from Study
  Country: None (occurrence: IL)
  Receive Date: 20170904
  Receipt Date: 20171121
  Transmission Date: 20180320
  Serious: Yes (Hospitalization, Other)
  Sender: FDA-Public Use
  Company Number: IL-ABBVIE-17K-082-2091291-00

PATIENT
  Age: 80 Year
  Sex: Male

DRUGS (4)
  1. OMEPRADEX [Concomitant]
     Active Substance: OMEPRAZOLE
     Indication: GASTROOESOPHAGEAL REFLUX DISEASE
     Route: 048
  2. DUODOPA [Suspect]
     Active Substance: CARBIDOPA\LEVODOPA
     Indication: PARKINSON^S DISEASE
     Dosage: MORNING DOSE: 8ML?CURRENT CONTINUES RATE: 3.1 ML/HOUR?ED: 1.5ML
     Route: 050
     Dates: start: 20130201
  3. LOTAN [Concomitant]
     Indication: HYPERTENSION
     Route: 048
  4. PK-MERZ [Concomitant]
     Active Substance: AMANTADINE
     Indication: PARKINSON^S DISEASE
     Route: 048

REACTIONS (4)
  - Cerebral haemorrhage [Not Recovered/Not Resolved]
  - Depressed mood [Not Recovered/Not Resolved]
  - Gait disturbance [Unknown]
  - Fall [Recovered/Resolved]

NARRATIVE: CASE EVENT DATE: 20170902
